FAERS Safety Report 5872083-3 (Version None)
Quarter: 2008Q3

REPORT INFORMATION
  Report Type: 
  Country: None (occurrence: None)
  Receive Date: 20080905
  Receipt Date: 20080829
  Transmission Date: 20090109
  Serious: Yes (Life-Threatening)
  Sender: FDA-Public Use
  Company Number: A0744949A

PATIENT
  Age: 78 Year
  Sex: Male

DRUGS (7)
  1. AVODART [Suspect]
     Indication: BENIGN PROSTATIC HYPERPLASIA
     Route: 048
  2. LIPITOR [Concomitant]
  3. ACTOS [Concomitant]
  4. ZIAC [Concomitant]
  5. GLUCOTROL [Concomitant]
  6. CARDIZEM [Concomitant]
  7. ASPIRIN [Concomitant]

REACTIONS (1)
  - URINARY TRACT INFECTION [None]
